FAERS Safety Report 25944072 (Version 1)
Quarter: 2025Q4

REPORT INFORMATION
  Report Type: Report from Study
  Country: US (occurrence: US)
  Receive Date: 20251021
  Receipt Date: 20251021
  Transmission Date: 20260118
  Serious: Yes (Other)
  Sender: ALEXION PHARMACEUTICALS
  Company Number: US-AstraZeneca-CH-00970976A

PATIENT
  Sex: Female

DRUGS (1)
  1. OSIMERTINIB [Suspect]
     Active Substance: OSIMERTINIB
     Indication: Lung neoplasm malignant
     Dosage: 80 MILLIGRAM, QD
     Dates: start: 20250130

REACTIONS (6)
  - Hepatic enzyme increased [Unknown]
  - Urinary tract infection [Unknown]
  - Back pain [Unknown]
  - Hepatic cirrhosis [Unknown]
  - Illness [Unknown]
  - Asthenia [Unknown]
